FAERS Safety Report 7953916-3 (Version None)
Quarter: 2011Q4

REPORT INFORMATION
  Report Type: 
  Country: None (occurrence: None)
  Receive Date: 20111202
  Receipt Date: 20111124
  Transmission Date: 20120403
  Serious: Yes (Life-Threatening, Hospitalization)
  Sender: FDA-Public Use
  Company Number: FR-BRISTOL-MYERS SQUIBB COMPANY-16257818

PATIENT
  Age: 72 Year
  Sex: Female

DRUGS (4)
  1. RAMIPRIL [Suspect]
     Dosage: 1DF=TRIATEC 2.5MG/DAY ON MORNING
     Route: 048
     Dates: start: 20090909, end: 20100720
  2. INSULATARD NPH HUMAN [Suspect]
     Dosage: ON MORNING
     Route: 058
     Dates: end: 20100720
  3. GLUCOPHAGE [Suspect]
     Route: 048
     Dates: start: 20090909, end: 20110720
  4. ISOPTIN [Suspect]
     Route: 048
     Dates: end: 20100720

REACTIONS (3)
  - RENAL FAILURE [None]
  - LACTIC ACIDOSIS [None]
  - HYPOGLYCAEMIC COMA [None]
